FAERS Safety Report 13622349 (Version 1)
Quarter: 2017Q2

REPORT INFORMATION
  Report Type: Spontaneous
  Country: US (occurrence: US)
  Receive Date: 20170607
  Receipt Date: 20170607
  Transmission Date: 20170830
  Serious: No
  Sender: FDA-Public Use
  Company Number: US-ROCHE-1877179

PATIENT
  Sex: Male

DRUGS (4)
  1. METHYLPRED [Concomitant]
     Active Substance: METHYLPREDNISOLONE
     Route: 065
  2. TAMSULOSIN [Concomitant]
     Active Substance: TAMSULOSIN
     Route: 065
  3. XELODA [Suspect]
     Active Substance: CAPECITABINE
     Indication: METASTASES TO LIVER
     Route: 065
     Dates: start: 20160826
  4. CEPHALEXIN. [Concomitant]
     Active Substance: CEPHALEXIN
     Route: 065

REACTIONS (1)
  - Pain in extremity [Not Recovered/Not Resolved]
